FAERS Safety Report 10594913 (Version 1)
Quarter: 2014Q4

REPORT INFORMATION
  Report Type: Report from Study
  Country: US (occurrence: US)
  Receive Date: 20141120
  Receipt Date: 20141120
  Transmission Date: 20150529
  Serious: Yes (Other)
  Sender: FDA-Public Use
  Company Number: US-AMGEN-USASL2014089030

PATIENT
  Age: 60 Year
  Sex: Female

DRUGS (1)
  1. ENBREL [Suspect]
     Active Substance: ETANERCEPT
     Indication: PSORIATIC ARTHROPATHY
     Dosage: 50 MG, QWK
     Route: 058
     Dates: start: 201406

REACTIONS (6)
  - Injection site pruritus [Recovered/Resolved]
  - Loss of consciousness [Unknown]
  - Injection site erythema [Recovered/Resolved]
  - Pain [Unknown]
  - Fall [Unknown]
  - Injection site swelling [Recovered/Resolved]
